FAERS Safety Report 20759860 (Version 2)
Quarter: 2022Q2

REPORT INFORMATION
  Report Type: Spontaneous
  Country: CN (occurrence: CN)
  Receive Date: 20220427
  Receipt Date: 20220601
  Transmission Date: 20220720
  Serious: Yes (Death, Other)
  Sender: FDA-Public Use
  Company Number: CN-SA-2022SA139738

PATIENT
  Age: 9 Year
  Sex: Female

DRUGS (8)
  1. ANTI-THYMOCYTE GLOBULIN (RABBIT) NOS [Suspect]
     Active Substance: LAPINE T-LYMPHOCYTE IMMUNE GLOBULIN
     Indication: Bone marrow conditioning regimen
     Dosage: 2.5 MG/KG, QD, 5 AND 2 DAYS PRIOR TRANSPLAN
  2. FLUDARABINE PHOSPHATE [Suspect]
     Active Substance: FLUDARABINE PHOSPHATE
     Indication: Bone marrow conditioning regimen
     Dosage: 30 MG/M2, QD, 6 AND 2 DAYS BEFORE TRANSPLANT
  3. CYCLOPHOSPHAMIDE [Suspect]
     Active Substance: CYCLOPHOSPHAMIDE
     Indication: Bone marrow conditioning regimen
     Dosage: 20 MG/KG, QD, 5 AND 2 DAYS BEFORE TRANSPLANT
  4. METHOTREXATE [Suspect]
     Active Substance: METHOTREXATE
     Indication: Prophylaxis against graft versus host disease
  5. METHYLPREDNISOLONE [Suspect]
     Active Substance: METHYLPREDNISOLONE
     Indication: Graft versus host disease
     Dosage: 2 MG/KG, QD
  6. CYCLOSPORINE [Suspect]
     Active Substance: CYCLOSPORINE
     Indication: Prophylaxis against graft versus host disease
  7. BASILIXIMAB [Suspect]
     Active Substance: BASILIXIMAB
     Indication: Acute graft versus host disease
     Dosage: 20 MG, TID (+32 D, +34 D, +38 D)
  8. MYCOPHENOLATE MOFETIL [Suspect]
     Active Substance: MYCOPHENOLATE MOFETIL
     Indication: Prophylaxis against graft versus host disease

REACTIONS (10)
  - Intracranial infection [Fatal]
  - Cytomegalovirus infection [Unknown]
  - Enterococcal infection [Recovered/Resolved]
  - Drug-induced liver injury [Recovered/Resolved]
  - Status epilepticus [Unknown]
  - Staphylococcal infection [Recovered/Resolved]
  - Off label use [Unknown]
  - Pyrexia [Unknown]
  - Diarrhoea [Unknown]
  - Toxicity to various agents [Unknown]
